FAERS Safety Report 13143060 (Version 2)
Quarter: 2017Q2

REPORT INFORMATION
  Report Type: Spontaneous
  Country: US (occurrence: US)
  Receive Date: 20170124
  Receipt Date: 20170412
  Transmission Date: 20170830
  Serious: No
  Sender: FDA-Public Use
  Company Number: US-PFIZER INC-2016499562

PATIENT
  Age: 65 Year
  Sex: Female

DRUGS (10)
  1. MIRACLE MOUTHWASH [Concomitant]
     Indication: STOMATITIS
     Dosage: 30 ML, 4X/DAY
     Route: 048
  2. DITROPAN [Concomitant]
     Active Substance: OXYBUTYNIN CHLORIDE
     Dosage: 10 MG, 1X/DAY (QHS)
     Route: 048
  3. DOXEPIN [Concomitant]
     Active Substance: DOXEPIN
     Dosage: 30 MG, DAILY (3 CAP PO DAILY)
     Route: 048
  4. KLONOPIN [Concomitant]
     Active Substance: CLONAZEPAM
     Dosage: 0.5 MG, 2X/DAY
     Route: 048
  5. NEXIUM [Concomitant]
     Active Substance: ESOMEPRAZOLE MAGNESIUM
     Dosage: 40 MG, DAILY
     Route: 048
  6. MIRAPEX [Concomitant]
     Active Substance: PRAMIPEXOLE DIHYDROCHLORIDE
     Dosage: 0.5 MG, 1X/DAY (QHS)
     Route: 048
  7. LEVOTHYROXINE. [Concomitant]
     Active Substance: LEVOTHYROXINE
     Dosage: 112 UG, DAILY
     Route: 048
  8. IBRANCE [Suspect]
     Active Substance: PALBOCICLIB
     Indication: BREAST CANCER
     Dosage: 100 MG, CYCLIC (1 PO DAILY FOR 21 DAYS, THEN OFF FOR 7 DAYS)
     Route: 048
  9. EMLA [Concomitant]
     Active Substance: LIDOCAINE\PRILOCAINE
     Dosage: UNK, DAILY (APP TOPICAL ONCE)
     Route: 061
  10. COMPAZINE [Concomitant]
     Active Substance: PROCHLORPERAZINE MALEATE
     Dosage: 10 MG, 3X/DAY
     Route: 048

REACTIONS (1)
  - Neoplasm progression [Unknown]
